FAERS Safety Report 5315583-7 (Version None)
Quarter: 2007Q2

REPORT INFORMATION
  Report Type: 
  Country: None (occurrence: None)
  Receive Date: 20070503
  Receipt Date: 20070430
  Transmission Date: 20071010
  Serious: Yes (Hospitalization, Other)
  Sender: FDA-Public Use
  Company Number: US-ELI_LILLY_AND_COMPANY-US200606002825

PATIENT
  Age: 51 Year
  Sex: Male
  Weight: 88.435 kg

DRUGS (14)
  1. ZYPREXA [Suspect]
     Indication: DEPRESSION
     Dosage: 5 MG, UNKNOWN
     Route: 065
     Dates: start: 19990101, end: 19990401
  2. ZYPREXA [Suspect]
     Dosage: 7.5 MG, UNKNOWN
     Route: 065
     Dates: start: 19990101, end: 19990401
  3. ZYPREXA [Suspect]
     Dosage: 10 MG, UNKNOWN
     Route: 065
     Dates: start: 19990101, end: 20000201
  4. ZYPREXA [Suspect]
     Dosage: 5 MG, UNKNOWN
     Route: 065
     Dates: start: 20010501, end: 20010601
  5. ZYPREXA [Suspect]
     Dosage: 10 MG, UNKNOWN
     Route: 065
     Dates: start: 20010501, end: 20010601
  6. ZYPREXA [Suspect]
     Dosage: UNK, UNKNOWN
     Route: 065
     Dates: start: 20010601, end: 20030101
  7. LORAZEPAM [Concomitant]
     Dates: start: 19990101
  8. FLUOXETINE [Concomitant]
     Dosage: UNK, UNK
     Dates: start: 19990101
  9. TRAZODONE HCL [Concomitant]
     Dates: start: 19990501, end: 20000201
  10. NEURONTIN [Concomitant]
     Dates: start: 19990501, end: 20050101
  11. BENZTROPINE MESYLATE [Concomitant]
     Dates: start: 19990101
  12. ZOLOFT [Concomitant]
     Indication: DEPRESSION
     Dates: start: 20010501, end: 20020101
  13. LUVOX [Concomitant]
     Indication: DEPRESSION
     Dosage: UNK, UNK
     Dates: start: 19990501, end: 20000201
  14. TENORMIN [Concomitant]
     Dates: start: 19880101

REACTIONS (18)
  - ANGIOPLASTY [None]
  - BLOOD TRIGLYCERIDES INCREASED [None]
  - DEPRESSION [None]
  - DIABETES MELLITUS [None]
  - DIABETIC COMA [None]
  - DIABETIC COMPLICATION [None]
  - DIABETIC KETOACIDOSIS [None]
  - DIABETIC NEUROPATHY [None]
  - HEPATITIS VIRAL [None]
  - HYPERTENSION [None]
  - HYPOGLYCAEMIA [None]
  - IMPAIRED FASTING GLUCOSE [None]
  - MENTAL IMPAIRMENT [None]
  - PAIN [None]
  - TARDIVE DYSKINESIA [None]
  - TOOTH DISORDER [None]
  - TREMOR [None]
  - WEIGHT INCREASED [None]
